APPROVED DRUG PRODUCT: FETZIMA
Active Ingredient: LEVOMILNACIPRAN HYDROCHLORIDE
Strength: EQ 120MG BASE
Dosage Form/Route: CAPSULE, EXTENDED RELEASE;ORAL
Application: N204168 | Product #004 | TE Code: AB
Applicant: ABBVIE INC
Approved: Jul 25, 2013 | RLD: Yes | RS: Yes | Type: RX

PATENTS:
Patent RE43879 | Expires: Jan 11, 2026
Patent 8481598 | Expires: Mar 2, 2031
Patent 8865937 | Expires: May 23, 2032

EXCLUSIVITY:
Code: M-304 | Date: Mar 24, 2026